FAERS Safety Report 24224011 (Version 1)
Quarter: 2024Q3

REPORT INFORMATION
  Report Type: Spontaneous
  Country: US (occurrence: None)
  Receive Date: 20240819
  Receipt Date: 20240819
  Transmission Date: 20241017
  Serious: Yes (Other)
  Sender: Public
  Company Number: None

PATIENT
  Age: 39 Year
  Sex: Male

DRUGS (1)
  1. ICATIBANT [Suspect]
     Active Substance: ICATIBANT ACETATE
     Indication: Complement factor abnormal
     Dosage: OTHER FREQUENCY : Q6H PRN,MAX 3 INJECTIONS PER 24HRS;?

REACTIONS (2)
  - Hereditary angioedema [None]
  - COVID-19 [None]
